FAERS Safety Report 21025509 (Version 1)
Quarter: 2022Q2

REPORT INFORMATION
  Report Type: Spontaneous
  Country: CA (occurrence: None)
  Receive Date: 20220630
  Receipt Date: 20220630
  Transmission Date: 20220721
  Serious: Yes (Hospitalization)
  Sender: FDA-Public Use
  Company Number: CA-ROCHE-3123546

PATIENT
  Age: 41 Year
  Sex: Female

DRUGS (2)
  1. CAPECITABINE [Suspect]
     Active Substance: CAPECITABINE
     Indication: Breast cancer metastatic
     Dosage: DRUG DOSE FIRST ADMINISTERED IS NOT PROVIDED
     Route: 048
  2. NERLYNX [Suspect]
     Active Substance: NERATINIB
     Indication: Breast cancer metastatic
     Dosage: DRUG DOSE FIRST ADMINISTERED IS 240.0 MILLIGRAM
     Route: 048

REACTIONS (4)
  - Palmar-plantar erythrodysaesthesia syndrome [Unknown]
  - Breast neoplasm [Unknown]
  - Off label use [Unknown]
  - Staphylococcal infection [Unknown]
